FAERS Safety Report 24023615 (Version 5)
Quarter: 2024Q3

REPORT INFORMATION
  Report Type: Report from Study
  Country: CH (occurrence: CH)
  Receive Date: 20240627
  Receipt Date: 20240917
  Transmission Date: 20241017
  Serious: Yes (Hospitalization)
  Sender: ABBVIE
  Company Number: CH-ABBVIE-5811361

PATIENT
  Sex: Male
  Weight: 77 kg

DRUGS (4)
  1. CARBIDOPA\LEVODOPA [Suspect]
     Active Substance: CARBIDOPA\LEVODOPA
     Indication: Parkinson^s disease
     Dosage: FREQUENCY TEXT: 16H THERAPY
     Route: 050
     Dates: start: 20210531
  2. CARBIDOPA\LEVODOPA [Suspect]
     Active Substance: CARBIDOPA\LEVODOPA
     Dosage: MD: 8.0 ML, CRD: 4.2 ML/H, ED: 1.50 ML FREQUENCY TEXT: 16H THERAPY
     Route: 050
     Dates: start: 20230810, end: 20240620
  3. CARBIDOPA\LEVODOPA [Suspect]
     Active Substance: CARBIDOPA\LEVODOPA
     Dosage: MD: 8.0 ML, CRD: 4.2 ML/H, ED: 1.50 ML?FREQUENCY TEXT: 16H THERAPY
     Route: 050
     Dates: start: 20240620, end: 20240820
  4. CARBIDOPA\LEVODOPA [Suspect]
     Active Substance: CARBIDOPA\LEVODOPA
     Dosage: MD: 8.0 ML, CRD: 4.2 ML/H, ED: 1.50 ML, FREQUENCY TEXT: 16H THERAPY
     Route: 050
     Dates: start: 20240820

REACTIONS (9)
  - Ulcer [Recovered/Resolved]
  - Ileus [Recovered/Resolved]
  - Jejunal ulcer [Recovered/Resolved]
  - Bezoar [Recovered/Resolved]
  - Device dislocation [Recovered/Resolved]
  - Fistula [Recovered/Resolved]
  - Device issue [Recovered/Resolved]
  - Off label use [Recovered/Resolved]
  - Device issue [Recovered/Resolved]

NARRATIVE: CASE EVENT DATE: 20240101
